FAERS Safety Report 6254947-4 (Version None)
Quarter: 2009Q3

REPORT INFORMATION
  Report Type: 
  Country: None (occurrence: None)
  Receive Date: 20090702
  Receipt Date: 20090622
  Transmission Date: 20100115
  Serious: Yes (Death, Other)
  Sender: FDA-Public Use
  Company Number: JP-PFIZER INC-2009210688

PATIENT
  Age: 54 Year

DRUGS (2)
  1. SUNITINIB MALATE [Suspect]
     Indication: GASTROINTESTINAL STROMAL TUMOUR
     Dosage: 50 MG, UNK
     Route: 048
     Dates: start: 20090416, end: 20090430
  2. DAI-KENCHU-TO [Concomitant]
     Route: 048

REACTIONS (2)
  - HYPERTENSION [None]
  - RUPTURED CEREBRAL ANEURYSM [None]
